FAERS Safety Report 10264681 (Version 1)
Quarter: 2014Q2

REPORT INFORMATION
  Report Type: Spontaneous
  Country: US (occurrence: US)
  Receive Date: 20140627
  Receipt Date: 20140627
  Transmission Date: 20141212
  Serious: No
  Sender: FDA-Public Use
  Company Number: US-GLAXOSMITHKLINE-A1067295A

PATIENT
  Sex: Female

DRUGS (15)
  1. TAFINLAR [Suspect]
     Indication: METASTATIC MALIGNANT MELANOMA
     Dosage: 150MG TWICE PER DAY
     Route: 048
     Dates: start: 20131127
  2. AMLODIPINE [Concomitant]
  3. ASPIRIN [Concomitant]
  4. CALCIUM CARBONATE [Concomitant]
  5. CHROMIUM [Concomitant]
  6. GLUCOSAMINE [Concomitant]
  7. COENZYME Q10 [Concomitant]
  8. IRBESARTAN [Concomitant]
  9. METAMUCIL [Concomitant]
  10. DIAZEPAM [Concomitant]
  11. VITAMIN B12 [Concomitant]
  12. VITAMIN C [Concomitant]
  13. VITAMIN D [Concomitant]
  14. ZINC [Concomitant]
  15. MULTIVITAMIN [Concomitant]

REACTIONS (1)
  - Expired product administered [Not Recovered/Not Resolved]
